FAERS Safety Report 9704634 (Version 1)
Quarter: 2013Q4

REPORT INFORMATION
  Report Type: Spontaneous
  Country: US (occurrence: None)
  Receive Date: 20131121
  Receipt Date: 20131121
  Transmission Date: 20140711
  Serious: No
  Sender: FDA-Public Use
  Company Number: None

PATIENT
  Age: 21 None
  Sex: Female

DRUGS (1)
  1. LEVAQUIN [Suspect]
     Indication: LOCALISED INFECTION
     Dates: start: 20120104, end: 20120108

REACTIONS (9)
  - Nausea [None]
  - Abdominal pain [None]
  - Chest discomfort [None]
  - Vomiting [None]
  - Diabetic ketoacidosis [None]
  - Hyperglycaemia [None]
  - Aspartate aminotransferase increased [None]
  - Alanine aminotransferase increased [None]
  - Diabetes mellitus inadequate control [None]
